FAERS Safety Report 15713660 (Version 2)
Quarter: 2018Q4

REPORT INFORMATION
  Report Type: Spontaneous
  Country: CH (occurrence: CH)
  Receive Date: 20181212
  Receipt Date: 20181217
  Transmission Date: 20190205
  Serious: Yes (Life-Threatening, Other)
  Sender: FDA-Public Use
  Company Number: CH-PFIZER INC-2018507192

PATIENT
  Sex: Female

DRUGS (7)
  1. SANALEPSI N [Suspect]
     Active Substance: DOXYLAMINE SUCCINATE
     Dosage: 10-15 GTTS, DAILY
     Route: 064
     Dates: start: 20181126, end: 20181126
  2. TEMESTA (LORAZEPAM) [Suspect]
     Active Substance: LORAZEPAM
     Dosage: 1 MG, SINGLE (IN TOTAL)
     Route: 064
     Dates: start: 20181126, end: 20181126
  3. CYMBALTA [Suspect]
     Active Substance: DULOXETINE HYDROCHLORIDE
     Indication: BORDERLINE PERSONALITY DISORDER
     Dosage: 60 MG, 2X/DAY
     Route: 064
  4. BUPIVACAINE. [Suspect]
     Active Substance: BUPIVACAINE
     Dosage: UNK
     Route: 064
     Dates: start: 20181126, end: 20181126
  5. LIDOCAINE. [Suspect]
     Active Substance: LIDOCAINE
     Dosage: UNK
     Route: 064
     Dates: start: 20181126, end: 20181126
  6. RANITIDINE. [Concomitant]
     Active Substance: RANITIDINE
     Dosage: UNK
     Route: 064
     Dates: start: 20181126
  7. LIORESAL [Concomitant]
     Active Substance: BACLOFEN
     Dosage: 60 MG, 2X/DAY
     Route: 064
     Dates: end: 201802

REACTIONS (6)
  - Hypotonia [Recovering/Resolving]
  - Maternal exposure during pregnancy [Recovering/Resolving]
  - Hyperlactacidaemia [Recovering/Resolving]
  - Neonatal respiratory acidosis [Recovering/Resolving]
  - Foetal biophysical profile score [Recovering/Resolving]
  - Bradypnoea [Recovering/Resolving]

NARRATIVE: CASE EVENT DATE: 20181126
